FAERS Safety Report 12010885 (Version 1)
Quarter: 2016Q1

REPORT INFORMATION
  Report Type: Spontaneous
  Country: IT (occurrence: IT)
  Receive Date: 20160205
  Receipt Date: 20160205
  Transmission Date: 20160526
  Serious: Yes (Other)
  Sender: FDA-Public Use
  Company Number: IT-GILEAD-2016-0195952

PATIENT
  Age: 74 Year
  Sex: Female

DRUGS (5)
  1. ESOMEPRAZOLE [Concomitant]
     Active Substance: ESOMEPRAZOLE
  2. HARVONI [Suspect]
     Active Substance: LEDIPASVIR\SOFOSBUVIR
     Indication: CHRONIC HEPATITIS C
     Dosage: 1 DF, QD
     Route: 048
     Dates: start: 20151009, end: 20160126
  3. LASIX [Concomitant]
     Active Substance: FUROSEMIDE
     Indication: LIVER DISORDER
     Dosage: 1 DF, UNK
  4. KANRENOL [Concomitant]
     Active Substance: CANRENOATE POTASSIUM
     Indication: LIVER DISORDER
     Dosage: 50 MG, UNK
     Route: 048
  5. VITAMIN D                          /00107901/ [Concomitant]
     Active Substance: ERGOCALCIFEROL
     Route: 048

REACTIONS (2)
  - Renal impairment [Unknown]
  - Glomerular filtration rate decreased [Unknown]

NARRATIVE: CASE EVENT DATE: 20160126
